FAERS Safety Report 10635897 (Version 2)
Quarter: 2014Q4

REPORT INFORMATION
  Report Type: Report from Study
  Country: CA (occurrence: CA)
  Receive Date: 20141205
  Receipt Date: 20141209
  Transmission Date: 20150529
  Serious: Yes (Death, Hospitalization, Other)
  Sender: FDA-Public Use
  Company Number: CA-ABBVIE-14K-028-1316585-00

PATIENT
  Sex: Female

DRUGS (1)
  1. HUMIRA [Suspect]
     Active Substance: ADALIMUMAB
     Indication: RHEUMATOID ARTHRITIS
     Route: 058
     Dates: start: 20100410

REACTIONS (25)
  - Dehydration [Fatal]
  - Thirst [Fatal]
  - Pneumonia [Fatal]
  - Abasia [Fatal]
  - Rheumatoid arthritis [Fatal]
  - Failure to thrive [Fatal]
  - Fatigue [Fatal]
  - Knee arthroplasty [Unknown]
  - Renal failure [Fatal]
  - Functional gastrointestinal disorder [Fatal]
  - Skin disorder [Fatal]
  - Diarrhoea [Unknown]
  - Hypertension [Unknown]
  - Hypopnoea [Fatal]
  - Hip arthroplasty [Unknown]
  - Cachexia [Fatal]
  - Leukocytosis [Fatal]
  - Cardiac failure congestive [Unknown]
  - Emphysema [Unknown]
  - Red blood cell sedimentation rate increased [Fatal]
  - Anaemia [Fatal]
  - Hand deformity [Fatal]
  - Foot deformity [Fatal]
  - Asthenia [Fatal]
  - Osteoarthritis [Unknown]

NARRATIVE: CASE EVENT DATE: 2011
